FAERS Safety Report 17870619 (Version 1)
Quarter: 2020Q2

REPORT INFORMATION
  Report Type: Spontaneous
  Country: US (occurrence: US)
  Receive Date: 20200606
  Receipt Date: 20200606
  Transmission Date: 20200714
  Serious: Yes (Disabling)
  Sender: FDA-Public Use
  Company Number: None

PATIENT
  Age: 60 Year
  Sex: Female
  Weight: 78.75 kg

DRUGS (8)
  1. ACETOMINOPHEN [Concomitant]
     Active Substance: ACETAMINOPHEN
  2. CRESTOR [Suspect]
     Active Substance: ROSUVASTATIN CALCIUM
     Indication: HYPERCHOLESTEROLAEMIA
     Dosage: ?          QUANTITY:30 TABLET(S);?
     Route: 048
     Dates: start: 20180615, end: 20180801
  3. METHYLPHENIDATE. [Concomitant]
     Active Substance: METHYLPHENIDATE
  4. SYMBICORT [Concomitant]
     Active Substance: BUDESONIDE\FORMOTEROL FUMARATE DIHYDRATE
  5. ANTACID TABLETS [Concomitant]
     Active Substance: UNSPECIFIED INGREDIENT
  6. FENOFEXIDINE [Concomitant]
  7. PANTOPRAZOLE [Concomitant]
     Active Substance: PANTOPRAZOLE
  8. RANITIDINE. [Concomitant]
     Active Substance: RANITIDINE

REACTIONS (7)
  - Myalgia [None]
  - Gait disturbance [None]
  - Immune-mediated myositis [None]
  - Loss of personal independence in daily activities [None]
  - Muscular weakness [None]
  - Disability [None]
  - Dyspnoea exertional [None]

NARRATIVE: CASE EVENT DATE: 20181101
